FAERS Safety Report 5253948-2 (Version None)
Quarter: 2007Q1

REPORT INFORMATION
  Report Type: 
  Country: None (occurrence: None)
  Receive Date: 20070228
  Receipt Date: 20070228
  Transmission Date: 20070707
  Serious: Yes (Other)
  Sender: FDA-Public Use
  Company Number: None

PATIENT
  Age: 53 Year
  Sex: Female
  Weight: 63.5036 kg

DRUGS (1)
  1. METHADONE HCL [Suspect]
     Indication: PROCEDURAL PAIN
     Dosage: 5 MG QID PO
     Route: 048
     Dates: start: 20060615, end: 20070227

REACTIONS (3)
  - CONDITION AGGRAVATED [None]
  - SLEEP APNOEA SYNDROME [None]
  - SOMNOLENCE [None]
